FAERS Safety Report 8201284-4 (Version None)
Quarter: 2012Q1

REPORT INFORMATION
  Report Type: 
  Country: None (occurrence: None)
  Receive Date: 20120312
  Receipt Date: 20120309
  Transmission Date: 20120608
  Serious: Yes (Death, Hospitalization)
  Sender: FDA-Public Use
  Company Number: PHHY2011TR69782

PATIENT
  Sex: Male

DRUGS (1)
  1. EXJADE [Suspect]
     Indication: THALASSAEMIA BETA
     Dates: start: 20110101

REACTIONS (5)
  - VOMITING [None]
  - CARDIAC FAILURE [None]
  - BLOOD GLUCOSE INCREASED [None]
  - DEATH [None]
  - RENAL FAILURE [None]
